FAERS Safety Report 7118616-0 (Version None)
Quarter: 2010Q4

REPORT INFORMATION
  Report Type: 
  Country: None (occurrence: None)
  Receive Date: 20101123
  Receipt Date: 20101110
  Transmission Date: 20110411
  Serious: No
  Sender: FDA-Public Use
  Company Number: US-ELI_LILLY_AND_COMPANY-US201011003322

PATIENT
  Sex: Male

DRUGS (5)
  1. CYMBALTA [Suspect]
     Dosage: 30 MG, UNK
     Dates: start: 20100401
  2. CYMBALTA [Suspect]
     Dosage: 60 MG, UNK
  3. CYMBALTA [Suspect]
     Dosage: UNK, UNKNOWN
  4. ANTACIDS [Concomitant]
     Dosage: UNK, AS NEEDED
  5. NSAID'S [Concomitant]
     Dosage: UNK, AS NEEDED

REACTIONS (13)
  - CHILLS [None]
  - CONFUSIONAL STATE [None]
  - CONTUSION [None]
  - DIZZINESS [None]
  - EPISTAXIS [None]
  - HEPATIC ENZYME INCREASED [None]
  - INCONTINENCE [None]
  - INCORRECT DOSE ADMINISTERED [None]
  - INFLUENZA [None]
  - INTENTIONAL DRUG MISUSE [None]
  - LETHARGY [None]
  - MICTURITION DISORDER [None]
  - NAUSEA [None]
